FAERS Safety Report 19296016 (Version 1)
Quarter: 2021Q2

REPORT INFORMATION
  Report Type: Other
  Country: CA (occurrence: CA)
  Receive Date: 20210524
  Receipt Date: 20210524
  Transmission Date: 20210717
  Serious: Yes (Death, Hospitalization, Other)
  Sender: FDA-Public Use
  Company Number: CA-EMD SERONO-9238396

PATIENT
  Age: 71 Year
  Sex: Female

DRUGS (5)
  1. NIVOLUMAB [Suspect]
     Active Substance: NIVOLUMAB
     Indication: NEUROENDOCRINE CARCINOMA OF THE SKIN
     Dates: start: 201910, end: 2020
  2. METFORMIN [Concomitant]
     Active Substance: METFORMIN HYDROCHLORIDE
     Indication: TYPE 2 DIABETES MELLITUS
  3. IPILIMUMAB [Suspect]
     Active Substance: IPILIMUMAB
     Indication: NEUROENDOCRINE CARCINOMA OF THE SKIN
     Dates: start: 201910, end: 2020
  4. AVELUMAB [Suspect]
     Active Substance: AVELUMAB
     Indication: NEUROENDOCRINE CARCINOMA OF THE SKIN
     Dates: start: 201710, end: 201910
  5. AMLODIPINE [Concomitant]
     Active Substance: AMLODIPINE BESYLATE
     Indication: HYPERTENSION

REACTIONS (14)
  - Gastric ulcer [Unknown]
  - Back pain [Unknown]
  - Vomiting [Unknown]
  - Seizure [Unknown]
  - Hypoglossal nerve paralysis [Unknown]
  - Urinary retention [Unknown]
  - Headache [Unknown]
  - Hypophagia [Unknown]
  - Physical deconditioning [Unknown]
  - Immune-mediated enterocolitis [Unknown]
  - Hypertension [Unknown]
  - Nausea [Unknown]
  - Metastases to meninges [Fatal]
  - Disease progression [Unknown]

NARRATIVE: CASE EVENT DATE: 201910
